FAERS Safety Report 9114311 (Version 1)
Quarter: 2013Q1

REPORT INFORMATION
  Report Type: Spontaneous
  Country: US (occurrence: US)
  Receive Date: 20130208
  Receipt Date: 20130208
  Transmission Date: 20140127
  Serious: No
  Sender: FDA-Public Use
  Company Number: US-RB-049467-13

PATIENT
  Age: 0 Year
  Sex: Male
  Weight: 2.6 kg

DRUGS (4)
  1. SUBUTEX [Suspect]
     Indication: DRUG DEPENDENCE
     Route: 064
     Dates: end: 20130118
  2. RANITIDINE [Suspect]
     Indication: GASTROOESOPHAGEAL REFLUX DISEASE
     Route: 064
     Dates: end: 20130118
  3. MIRALAX [Suspect]
     Indication: CONSTIPATION
     Route: 064
     Dates: end: 20130118
  4. PRENATAL VITAMINS [Suspect]
     Indication: MEDICAL DIET
     Dosage: DOSING DETAILS UNKNOWN
     Route: 064
     Dates: end: 20130118

REACTIONS (2)
  - Foetal exposure during pregnancy [Recovered/Resolved]
  - Adverse event [Not Recovered/Not Resolved]
